FAERS Safety Report 5537130-7 (Version None)
Quarter: 2007Q4

REPORT INFORMATION
  Report Type: 
  Country: None (occurrence: None)
  Receive Date: 20071205
  Receipt Date: 20071205
  Transmission Date: 20080405
  Serious: No
  Sender: FDA-Public Use
  Company Number: None

PATIENT
  Sex: Female
  Weight: 122.4712 kg

DRUGS (2)
  1. CHANTIX [Suspect]
     Indication: SMOKING CESSATION THERAPY
     Dosage: 1/2 MG BID PO : 1 MG BID PO
     Route: 048
     Dates: start: 20071026, end: 20071102
  2. CHANTIX [Suspect]
     Indication: SMOKING CESSATION THERAPY
     Dosage: 1/2 MG BID PO : 1 MG BID PO
     Route: 048
     Dates: start: 20071103, end: 20071129

REACTIONS (6)
  - ANGER [None]
  - ANXIETY [None]
  - DEPRESSION [None]
  - PANIC ATTACK [None]
  - STRESS [None]
  - SUICIDAL IDEATION [None]
